FAERS Safety Report 6711932-3 (Version None)
Quarter: 2010Q2

REPORT INFORMATION
  Report Type: 
  Country: None (occurrence: None)
  Receive Date: 20100505
  Receipt Date: 20091001
  Transmission Date: 20101027
  Serious: No
  Sender: FDA-Public Use
  Company Number: US-TYCO HEALTHCARE/MALLINCKRODT-T200901853

PATIENT
  Sex: Female

DRUGS (1)
  1. METHADONE HCL [Suspect]
     Dosage: 80 MG, QD

REACTIONS (1)
  - PAIN [None]
